FAERS Safety Report 7698683-6 (Version None)
Quarter: 2011Q3

REPORT INFORMATION
  Report Type: 
  Country: None (occurrence: None)
  Receive Date: 20110818
  Receipt Date: 20110818
  Transmission Date: 20111222
  Serious: No
  Sender: FDA-Public Use
  Company Number: None

PATIENT
  Age: 61 Year
  Sex: Male
  Weight: 76.2043 kg

DRUGS (1)
  1. PROPOFOL [Suspect]

REACTIONS (3)
  - HAEMORRHAGIC DIATHESIS [None]
  - LUPUS-LIKE SYNDROME [None]
  - PAIN [None]
